FAERS Safety Report 10408753 (Version 1)
Quarter: 2014Q3

REPORT INFORMATION
  Report Type: Spontaneous
  Country: GB (occurrence: None)
  Receive Date: 20140822
  Receipt Date: 20140822
  Transmission Date: 20150326
  Serious: Yes (Death, Other)
  Sender: FDA-Public Use
  Company Number: AUR-APL-2014-08891

PATIENT
  Age: 83 Year
  Sex: Female
  Weight: 85 kg

DRUGS (15)
  1. CEFRADINE (CEFRADINE) [Concomitant]
  2. GTN (GLYCERYL TRINITRATE) [Concomitant]
  3. MIRTAZAPINE (MIRTAZAPINE) [Concomitant]
     Active Substance: MIRTAZAPINE
  4. OMEPRAZOLE (OMEPRAZOLE) [Concomitant]
     Active Substance: OMEPRAZOLE
  5. SOTALOL (SOTALOL) [Concomitant]
     Active Substance: SOTALOL
  6. DIAZEPAM (DIAZEPAM) [Concomitant]
     Active Substance: DIAZEPAM
  7. DICYCLOVERINE (DICYCLOVERINE) [Concomitant]
  8. NIFEDIPINE (NIFEDIPINE) [Concomitant]
  9. DALTEPARIN [Suspect]
     Active Substance: DALTEPARIN
     Indication: ACUTE CORONARY SYNDROME
     Route: 058
     Dates: start: 20140115
  10. LOPERAMIDE (LOPERAMIDE) [Concomitant]
     Active Substance: LOPERAMIDE
  11. CLOPIDOGREL (CLOPIDOGREL) UNKNOWN [Suspect]
     Active Substance: CLOPIDOGREL BISULFATE
     Indication: ACUTE CORONARY SYNDROME
  12. PHENINDIONE (PHENINDIONE) [Concomitant]
  13. CETIRIZINE [Concomitant]
     Active Substance: CETIRIZINE HYDROCHLORIDE
  14. GAVISCON (ALGINIC ACID, ALUMINIUM HYDROXIDE GEL, DRIED, MAGNESIUM TRISILICATE, SODIUM ALGINATE, SODIUM BICARBONATE) [Concomitant]
  15. SIMVASTATIN (SIMVASTATIN) [Concomitant]
     Active Substance: SIMVASTATIN

REACTIONS (13)
  - Blood chloride decreased [None]
  - Anxiety [None]
  - Burning sensation [None]
  - Malaise [None]
  - Blood glucose increased [None]
  - Unresponsive to stimuli [None]
  - Atrial fibrillation [None]
  - Death [None]
  - Documented hypersensitivity to administered drug [None]
  - Circulatory collapse [None]
  - Rash generalised [None]
  - Hypotension [None]
  - Echocardiogram abnormal [None]

NARRATIVE: CASE EVENT DATE: 20140115
